FAERS Safety Report 19688326 (Version 2)
Quarter: 2021Q3

REPORT INFORMATION
  Report Type: Spontaneous
  Country: PT (occurrence: PT)
  Receive Date: 20210811
  Receipt Date: 20210928
  Transmission Date: 20211014
  Serious: Yes (Other)
  Sender: FDA-Public Use
  Company Number: PT-VIFOR (INTERNATIONAL) INC.-VIT-2021-06549

PATIENT
  Age: 84 Year
  Weight: 72.6 kg

DRUGS (11)
  1. RIVAROXABAN [Concomitant]
     Active Substance: RIVAROXABAN
     Dosage: WITH A SNACK
     Route: 048
  2. FEBUXOSTAT. [Concomitant]
     Active Substance: FEBUXOSTAT
     Dosage: AT DINNER
     Route: 048
  3. ENTRESTO [Concomitant]
     Active Substance: SACUBITRIL\VALSARTAN
     Dosage: AT BREAKFAST AND AT DINNER
     Route: 048
  4. FUROSEMIDE. [Concomitant]
     Active Substance: FUROSEMIDE
     Dosage: BEFORE BREAKFAST OR FIRST MEAL OF THE DAY
     Route: 048
  5. KESTINE 20 [Concomitant]
     Dosage: AT DINNER
     Route: 048
  6. BRIMICA GENUAIR [Concomitant]
     Active Substance: ACLIDINIUM BROMIDE\FORMOTEROL FUMARATE
  7. INVOKANA [Concomitant]
     Active Substance: CANAGLIFLOZIN
     Dosage: AT BREAKFAST
     Route: 048
  8. TRAJENTA [Concomitant]
     Active Substance: LINAGLIPTIN
     Dosage: AT BREAKFAST
     Route: 048
  9. VELTASSA [Suspect]
     Active Substance: PATIROMER
     Indication: HYPERKALAEMIA
     Route: 048
     Dates: start: 20210308
  10. ATORVASTATIN, EZETIMIBE [Concomitant]
     Dosage: AT DINNER
     Route: 048
  11. SPIRONOLACTONE. [Concomitant]
     Active Substance: SPIRONOLACTONE

REACTIONS (1)
  - Renal impairment [Unknown]

NARRATIVE: CASE EVENT DATE: 20210311
